FAERS Safety Report 5056110-1 (Version None)
Quarter: 2006Q3

REPORT INFORMATION
  Report Type: 
  Country: None (occurrence: None)
  Receive Date: 20060720
  Receipt Date: 20040712
  Transmission Date: 20061208
  Serious: Yes (Hospitalization)
  Sender: FDA-Public Use
  Company Number: US-GLAXOSMITHKLINE-A0517817A

PATIENT
  Age: 17 Year
  Sex: Female
  Weight: 56.8 kg

DRUGS (9)
  1. PAXIL [Suspect]
     Indication: DEPRESSION
     Dosage: 10MG TWICE PER DAY
     Route: 048
     Dates: start: 20020926
  2. ATIVAN [Suspect]
     Dosage: 2TAB SINGLE DOSE
  3. BENADRYL [Suspect]
     Dosage: 2TAB SINGLE DOSE
  4. ACETAMINOPHEN [Suspect]
     Dosage: 4TAB SINGLE DOSE
     Route: 048
  5. CHEMOTHERAPY [Concomitant]
  6. METHOTREXATE [Concomitant]
     Dosage: 10MG WEEKLY
     Dates: start: 20020501
  7. PURINETHOL [Concomitant]
     Dosage: 50MG ALTERNATE DAYS
     Dates: start: 20020501
  8. VENTOLIN [Concomitant]
     Route: 055
  9. BACTRIM [Concomitant]
     Dates: start: 20020501

REACTIONS (14)
  - ABNORMAL BEHAVIOUR [None]
  - AGITATION [None]
  - AKATHISIA [None]
  - ANXIETY [None]
  - DEPERSONALISATION [None]
  - FLAT AFFECT [None]
  - INSOMNIA [None]
  - INTENTIONAL OVERDOSE [None]
  - MENTAL DISORDER [None]
  - NAUSEA [None]
  - SOCIAL AVOIDANT BEHAVIOUR [None]
  - SUICIDAL IDEATION [None]
  - SUICIDE ATTEMPT [None]
  - TREMOR [None]
